FAERS Safety Report 10103012 (Version 2)
Quarter: 2014Q2

REPORT INFORMATION
  Report Type: Spontaneous
  Country: US (occurrence: US)
  Receive Date: 20140424
  Receipt Date: 20140424
  Transmission Date: 20141212
  Serious: Yes (Other)
  Sender: FDA-Public Use
  Company Number: US-BRISTOL-MYERS SQUIBB COMPANY-20070256

PATIENT
  Age: 67 Year
  Sex: Male

DRUGS (7)
  1. ELIQUIS [Suspect]
     Indication: ATRIAL FLUTTER
     Route: 048
     Dates: start: 20131218, end: 20140110
  2. CARDIZEM [Concomitant]
  3. FLOMAX [Concomitant]
  4. HCTZ [Concomitant]
  5. VITAMIN B12 [Concomitant]
  6. EFUDEX [Concomitant]
  7. LYRICA [Concomitant]

REACTIONS (1)
  - Atrial thrombosis [Unknown]
